FAERS Safety Report 8112457-3 (Version None)
Quarter: 2012Q1

REPORT INFORMATION
  Report Type: 
  Country: None (occurrence: None)
  Receive Date: 20120203
  Receipt Date: 20120202
  Transmission Date: 20120608
  Serious: Yes (Other)
  Sender: FDA-Public Use
  Company Number: IT-PFIZER INC-2012029716

PATIENT
  Age: 35 Year
  Sex: Female

DRUGS (2)
  1. DEPAKENE [Concomitant]
  2. ZOLOFT [Suspect]
     Indication: INJURY
     Dosage: 50 MG, 1X/DAY

REACTIONS (4)
  - PICA [None]
  - PIGMENTATION LIP [None]
  - AGGRESSION [None]
  - SOMNOLENCE [None]
